FAERS Safety Report 16444803 (Version 7)
Quarter: 2019Q4

REPORT INFORMATION
  Report Type: Report from Study
  Country: CA (occurrence: CA)
  Receive Date: 20190618
  Receipt Date: 20191202
  Transmission Date: 20200122
  Serious: Yes (Other)
  Sender: FDA-Public Use
  Company Number: CA-SA-2019SA087430

PATIENT
  Age: 32 Year
  Sex: Male

DRUGS (12)
  1. GRAVOL [Concomitant]
     Active Substance: DIMENHYDRINATE
     Indication: PREMEDICATION
     Dosage: 50 MG, UNK
     Route: 048
     Dates: start: 20190325, end: 20190327
  2. RANITIDINE. [Concomitant]
     Active Substance: RANITIDINE
     Indication: PREMEDICATION
     Dosage: 150 MG, BID
     Route: 048
     Dates: start: 20190325, end: 20190327
  3. MARIJUANA [Concomitant]
     Active Substance: CANNABIS SATIVA SUBSP. INDICA TOP
     Indication: MUSCLE SPASMS
     Dosage: UNK UNK, PRN
     Route: 065
  4. METHYLPREDISOLONE [Concomitant]
     Active Substance: METHYLPREDNISOLONE
     Indication: PREMEDICATION
     Dosage: 1 G, UNK
     Route: 042
     Dates: start: 20190325, end: 20190327
  5. ACYCLOVIR [ACICLOVIR] [Concomitant]
     Active Substance: ACYCLOVIR
     Indication: PREMEDICATION
     Dosage: 200 MG, UNK
     Route: 048
     Dates: start: 20190325
  6. TYLENOL [Concomitant]
     Active Substance: ACETAMINOPHEN
     Indication: PREMEDICATION
     Dosage: 975 MG, UNK
     Route: 048
     Dates: start: 20190325, end: 20190327
  7. BENADRYL [Concomitant]
     Active Substance: DIPHENHYDRAMINE HYDROCHLORIDE
     Indication: PREMEDICATION
     Dosage: 50 MG, UNK
     Route: 048
     Dates: start: 20190325, end: 20190327
  8. REACTINE [CETIRIZINE HYDROCHLORIDE] [Concomitant]
     Active Substance: CETIRIZINE HYDROCHLORIDE
     Indication: PREMEDICATION
     Dosage: 10 MG, BID
     Route: 048
     Dates: start: 20190325, end: 20190327
  9. VITAMIN D [VITAMIN D NOS] [Concomitant]
     Active Substance: VITAMIN D NOS
     Dosage: 5000 IU, QD
     Route: 048
  10. VENTOLIN [Concomitant]
     Active Substance: ALBUTEROL SULFATE
     Dosage: UNK UNK, PRN
     Route: 048
  11. ALEMTUZUMAB [Suspect]
     Active Substance: ALEMTUZUMAB
     Indication: RELAPSING-REMITTING MULTIPLE SCLEROSIS
     Dosage: 12 MG, QD
     Route: 041
     Dates: start: 20190325, end: 20190327
  12. BETADERM [Concomitant]
     Active Substance: BETAMETHASONE VALERATE
     Dosage: UNK UNK, PRN
     Route: 048

REACTIONS (33)
  - Urinary retention [Recovered/Resolved]
  - Pain in extremity [Recovering/Resolving]
  - Chromaturia [Recovered/Resolved]
  - Hypotension [Recovered/Resolved]
  - Rash erythematous [Not Recovered/Not Resolved]
  - Urine abnormality [Recovered/Resolved]
  - Headache [Recovered/Resolved]
  - Condition aggravated [Unknown]
  - Bruxism [Unknown]
  - Paraesthesia [Recovered/Resolved]
  - Back pain [Recovered/Resolved]
  - Urticaria [Not Recovered/Not Resolved]
  - Productive cough [Recovered/Resolved]
  - Rhinorrhoea [Recovered/Resolved]
  - Dizziness [Recovered/Resolved]
  - Band sensation [Recovered/Resolved]
  - Rash [Not Recovered/Not Resolved]
  - Pain in jaw [Recovered/Resolved]
  - Facial pain [Unknown]
  - Muscular weakness [Recovering/Resolving]
  - Micturition urgency [Recovered/Resolved]
  - Influenza [Recovered/Resolved]
  - Fungal infection [Not Recovered/Not Resolved]
  - Nausea [Recovered/Resolved]
  - Dysuria [Recovered/Resolved]
  - Dermatitis [Not Recovered/Not Resolved]
  - Urinary tract infection [Recovered/Resolved]
  - Chills [Recovered/Resolved]
  - Dizziness [Recovered/Resolved]
  - Haemoglobin urine [Recovered/Resolved]
  - Cough [Recovered/Resolved]
  - Uhthoff^s phenomenon [Recovered/Resolved]
  - Pyrexia [Recovered/Resolved]

NARRATIVE: CASE EVENT DATE: 20190327
